FAERS Safety Report 6185496-X (Version None)
Quarter: 2009Q2

REPORT INFORMATION
  Report Type: 
  Country: None (occurrence: None)
  Receive Date: 20090511
  Receipt Date: 20090505
  Transmission Date: 20091009
  Serious: Yes (Death, Hospitalization, Other)
  Sender: FDA-Public Use
  Company Number: PHHY2009BR14557

PATIENT
  Age: 87 Year
  Sex: Female

DRUGS (7)
  1. GALVUS MET COMBIPACK [Suspect]
     Indication: DIABETES MELLITUS
     Dosage: 850/100 MG
     Route: 048
  2. GALVUS MET COMBIPACK [Suspect]
     Dosage: 850/50 MG, ONE TABLET IN MORNING,AFTERNOON AND NIGHT
  3. DIOVAN [Suspect]
     Indication: HYPERTENSION
     Dosage: 160 MG, 1 TABLET DAILY
     Route: 048
  4. PREVENCOR [Concomitant]
     Indication: CARDIAC DISORDER
     Route: 048
  5. BISOPROLOL FUMARATE [Concomitant]
     Indication: CARDIAC DISORDER
     Dosage: 25 MG
     Route: 048
  6. DIAMICRON [Concomitant]
     Indication: DIABETES MELLITUS
     Route: 048
  7. GABAPENTIN [Concomitant]
     Indication: PAIN IN EXTREMITY
     Route: 048

REACTIONS (12)
  - ABDOMINAL PAIN LOWER [None]
  - BONE PAIN [None]
  - DISEASE PROGRESSION [None]
  - HAEMORRHAGE [None]
  - HYPOGLYCAEMIA [None]
  - HYPOTHYROIDISM [None]
  - MULTI-ORGAN FAILURE [None]
  - NOSOCOMIAL INFECTION [None]
  - THROMBOSIS [None]
  - URINARY TRACT INFECTION [None]
  - UTERINE CANCER [None]
  - WHITE BLOOD CELL COUNT INCREASED [None]
